FAERS Safety Report 26166576 (Version 2)
Quarter: 2025Q4

REPORT INFORMATION
  Report Type: Spontaneous
  Country: TH (occurrence: TH)
  Receive Date: 20251217
  Receipt Date: 20251231
  Transmission Date: 20260117
  Serious: Yes (Life-Threatening, Hospitalization, Other)
  Sender: ALKEM
  Company Number: None

PATIENT
  Age: 17 Year
  Sex: Female

DRUGS (4)
  1. QUETIAPINE FUMARATE [Suspect]
     Active Substance: QUETIAPINE FUMARATE
     Indication: Product used for unknown indication
     Dosage: 200 MILLIGRAM
     Route: 048
  2. ACETAMINOPHEN [Suspect]
     Active Substance: ACETAMINOPHEN
     Indication: Product used for unknown indication
     Dosage: UNK
     Route: 048
  3. TRAZODONE [Suspect]
     Active Substance: TRAZODONE HYDROCHLORIDE
     Indication: Product used for unknown indication
     Dosage: 50 MILLIGRAM
     Route: 048
  4. SERTRALINE [Suspect]
     Active Substance: SERTRALINE HYDROCHLORIDE
     Indication: Product used for unknown indication
     Dosage: 50 MILLIGRAM
     Route: 048

REACTIONS (14)
  - Encephalopathy [Unknown]
  - Pneumothorax [Unknown]
  - Tachypnoea [Unknown]
  - Hyperreflexia [Unknown]
  - Hyperthermia [Unknown]
  - Barotrauma [Unknown]
  - Hypoxia [Unknown]
  - Pneumonia aspiration [Unknown]
  - Blood creatine phosphokinase increased [Unknown]
  - Serotonin syndrome [Recovered/Resolved]
  - Altered state of consciousness [Unknown]
  - Coma [Unknown]
  - Tachycardia [Unknown]
  - Intentional overdose [Unknown]
